FAERS Safety Report 15929102 (Version 1)
Quarter: 2019Q1

REPORT INFORMATION
  Report Type: Spontaneous
  Country: FR (occurrence: FR)
  Receive Date: 20190206
  Receipt Date: 20190206
  Transmission Date: 20190417
  Serious: Yes (Hospitalization, Other)
  Sender: FDA-Public Use
  Company Number: FR-TEVA-2019-FR-1006476

PATIENT
  Age: 36 Year
  Sex: Female

DRUGS (8)
  1. EPIVIR [Suspect]
     Active Substance: LAMIVUDINE
     Dosage: 1 DOSAGE FORMS DAILY;
     Route: 048
     Dates: start: 20051108
  2. AUGMENTINE [Suspect]
     Active Substance: AMOXICILLIN\CLAVULANATE POTASSIUM
     Dosage: 3 GRAM DAILY;
     Route: 048
     Dates: start: 20051201, end: 20051202
  3. VIREAD [Suspect]
     Active Substance: TENOFOVIR DISOPROXIL FUMARATE
     Dates: start: 2003
  4. VIRAMUNE [Suspect]
     Active Substance: NEVIRAPINE
     Dosage: 1 DOSAGE FORMS DAILY;
     Route: 048
     Dates: start: 20051108
  5. VIREAD [Suspect]
     Active Substance: TENOFOVIR DISOPROXIL FUMARATE
     Dosage: 300 MILLIGRAM DAILY;
     Route: 048
     Dates: start: 20051108
  6. CLARITYNE [Concomitant]
     Active Substance: LORATADINE
  7. EFFERALGAN [Concomitant]
     Active Substance: ACETAMINOPHEN
     Route: 048
     Dates: start: 20051201, end: 20051202
  8. IBUPROFEN. [Suspect]
     Active Substance: IBUPROFEN
     Route: 048
     Dates: start: 20051201, end: 20051202

REACTIONS (8)
  - Diarrhoea [Unknown]
  - Eyelid oedema [Unknown]
  - Lip oedema [Unknown]
  - Thrombocytopenia [Unknown]
  - Abdominal pain [Unknown]
  - Chills [Unknown]
  - Pyrexia [Unknown]
  - Rash [Unknown]

NARRATIVE: CASE EVENT DATE: 2003
